FAERS Safety Report 6779729-6 (Version None)
Quarter: 2010Q2

REPORT INFORMATION
  Report Type: 
  Country: None (occurrence: None)
  Receive Date: 20100618
  Receipt Date: 20100610
  Transmission Date: 20101027
  Serious: Yes (Death)
  Sender: FDA-Public Use
  Company Number: DE-ABBOTT-09P-062-0565102-00

PATIENT
  Sex: Female

DRUGS (4)
  1. HUMIRA [Suspect]
     Indication: RHEUMATOID ARTHRITIS
     Route: 058
     Dates: start: 20031204, end: 20070101
  2. COMMERCIAL HUMIRA [Concomitant]
     Indication: RHEUMATOID ARTHRITIS
     Dates: start: 20031006
  3. TRAMADURA [Concomitant]
     Indication: PAIN
     Dates: start: 20030625, end: 20070101
  4. ACTONEL [Concomitant]
     Indication: OSTEOPOROSIS
     Dates: start: 20030923, end: 20070101

REACTIONS (1)
  - DEATH [None]
